FAERS Safety Report 5988616-2 (Version None)
Quarter: 2008Q4

REPORT INFORMATION
  Report Type: 
  Country: None (occurrence: None)
  Receive Date: 20081208
  Receipt Date: 20081208
  Transmission Date: 20090506
  Serious: Yes (Hospitalization)
  Sender: FDA-Public Use
  Company Number: None

PATIENT
  Age: 58 Year
  Sex: Female

DRUGS (2)
  1. NIACIN [Suspect]
     Indication: ALOPECIA
     Dosage: 500MG DAILY PO
     Route: 048
     Dates: start: 20081201, end: 20081201
  2. NIACIN [Suspect]
     Indication: SUPPLEMENTATION THERAPY
     Dosage: 500MG DAILY PO
     Route: 048
     Dates: start: 20081201, end: 20081201

REACTIONS (2)
  - ANAPHYLACTIC REACTION [None]
  - SYNCOPE [None]
